FAERS Safety Report 4930417-8 (Version None)
Quarter: 2006Q1

REPORT INFORMATION
  Report Type: 
  Country: None (occurrence: None)
  Receive Date: 20060118
  Receipt Date: 20050824
  Transmission Date: 20060701
  Serious: No
  Sender: FDA-Public Use
  Company Number: 2005001666

PATIENT
  Age: 68 Year
  Sex: Female

DRUGS (11)
  1. TARCEVA [Suspect]
     Dosage: 150 MG (QD), ORAL; 100 MG, ORAL
     Route: 048
     Dates: start: 20050713, end: 20050719
  2. TARCEVA [Suspect]
     Dosage: 150 MG (QD), ORAL; 100 MG, ORAL
     Route: 048
     Dates: start: 20050819, end: 20050820
  3. K-DUR 10 [Concomitant]
  4. DILTIAZEM HCL [Concomitant]
  5. FUROSEMIDE [Concomitant]
  6. WARFARIN SODIUM [Concomitant]
  7. THEOPHYLLINE [Concomitant]
  8. LENOXIN (DIGOXIN) [Concomitant]
  9. ASPIRIN [Concomitant]
  10. LIPITOR [Concomitant]
  11. LEVOXYL [Concomitant]

REACTIONS (4)
  - ALOPECIA [None]
  - EPISTAXIS [None]
  - HEADACHE [None]
  - NAUSEA [None]
